FAERS Safety Report 9245687 (Version 2)
Quarter: 2013Q2

REPORT INFORMATION
  Report Type: Spontaneous
  Country: US (occurrence: US)
  Receive Date: 20130422
  Receipt Date: 20130522
  Transmission Date: 20140414
  Serious: No
  Sender: FDA-Public Use
  Company Number: US-PFIZER INC-2013119410

PATIENT
  Age: 95 Year
  Sex: Female
  Weight: 81.63 kg

DRUGS (3)
  1. ADVIL GELCAPS [Suspect]
     Indication: PAIN
     Dosage: FOUR CAPSULES IN A DAY
     Route: 048
     Dates: start: 1992, end: 201304
  2. NORVASC [Concomitant]
     Indication: HYPERTENSION
     Dosage: UNK
  3. HYDROCHLOROTHIAZIDE/IRBESARTAN HYDROCHLORIDE [Concomitant]
     Indication: HYPERTENSION
     Dosage: UNK

REACTIONS (8)
  - Poor quality drug administered [Unknown]
  - Dizziness [Unknown]
  - Feeling abnormal [Unknown]
  - Visual acuity reduced [Unknown]
  - Palatal disorder [Unknown]
  - Gastric disorder [Unknown]
  - Product colour issue [Unknown]
  - Product label issue [Unknown]
